FAERS Safety Report 5648386-4 (Version None)
Quarter: 2008Q1

REPORT INFORMATION
  Report Type: 
  Country: None (occurrence: None)
  Receive Date: 20080303
  Receipt Date: 20080303
  Transmission Date: 20080703
  Serious: No
  Sender: FDA-Public Use
  Company Number: None

PATIENT
  Age: 50 Year
  Sex: Male
  Weight: 90.7194 kg

DRUGS (2)
  1. RANITIDINE [Suspect]
     Indication: GASTROOESOPHAGEAL REFLUX DISEASE
     Dosage: 150MG 1 PO BID ORAL
     Route: 048
     Dates: start: 20000301
  2. RANITIDINE [Suspect]
     Indication: SCHIZOPHRENIA
     Dosage: 150MG 1 PO BID ORAL
     Route: 048
     Dates: start: 20000301

REACTIONS (1)
  - THERAPEUTIC RESPONSE DECREASED [None]
